FAERS Safety Report 17669933 (Version 1)
Quarter: 2020Q2

REPORT INFORMATION
  Report Type: Spontaneous
  Country: JP (occurrence: JP)
  Receive Date: 20200415
  Receipt Date: 20200415
  Transmission Date: 20200713
  Serious: Yes (Hospitalization, Other)
  Sender: FDA-Public Use
  Company Number: NVSJ2020JP003171

PATIENT
  Age: 42 Year
  Sex: Male
  Weight: 92.3 kg

DRUGS (3)
  1. EQUMET [Suspect]
     Active Substance: METFORMIN HYDROCHLORIDE\VILDAGLIPTIN
     Indication: DIABETES MELLITUS
     Dosage: 1 DF(METFORMIN250MG/VILDAGLIPTIN50MG), BID
     Route: 048
     Dates: start: 20200128, end: 20200229
  2. TAKECAB [Concomitant]
     Active Substance: VONOPRAZAN FUMARATE
     Indication: CHRONIC GASTRITIS
     Dosage: 20 MG, QD
     Route: 048
     Dates: start: 20200219, end: 20200229
  3. EQUA TAB [Suspect]
     Active Substance: VILDAGLIPTIN
     Indication: DIABETES MELLITUS
     Dosage: UNK
     Route: 048

REACTIONS (7)
  - Abdominal pain [Recovered/Resolved]
  - Lithiasis [Unknown]
  - Drug-induced liver injury [Not Recovered/Not Resolved]
  - Jaundice [Unknown]
  - Nausea [Recovered/Resolved]
  - Diabetes mellitus [Unknown]
  - Pruritus [Unknown]

NARRATIVE: CASE EVENT DATE: 201910
